FAERS Safety Report 6706185-6 (Version None)
Quarter: 2010Q2

REPORT INFORMATION
  Report Type: 
  Country: None (occurrence: None)
  Receive Date: 20100430
  Receipt Date: 20100430
  Transmission Date: 20101027
  Serious: No
  Sender: FDA-Public Use
  Company Number: None

PATIENT
  Sex: Male
  Weight: 61.5 kg

DRUGS (4)
  1. FLUOROURACIL [Suspect]
     Dosage: 3900 MG
     Dates: end: 20100413
  2. BEVACIZUMAB (RHUMAB VEGF) [Suspect]
     Dosage: 325 MG
     Dates: end: 20100413
  3. LEUCOVORIN CALCIUM [Suspect]
     Dosage: 696 MG
     Dates: end: 20100413
  4. ELOXATIN [Suspect]
     Dosage: 115 MG
     Dates: end: 20100413

REACTIONS (1)
  - PULMONARY EMBOLISM [None]
